FAERS Safety Report 5920941-3 (Version None)
Quarter: 2008Q4

REPORT INFORMATION
  Report Type: 
  Country: None (occurrence: None)
  Receive Date: 20081015
  Receipt Date: 20081015
  Transmission Date: 20090506
  Serious: Yes (Hospitalization)
  Sender: FDA-Public Use
  Company Number: None

PATIENT
  Age: 33 Year
  Sex: Female
  Weight: 65.7716 kg

DRUGS (3)
  1. WHITENING PRE-BRUSH RINSE EQUATE [Suspect]
     Indication: DENTAL CLEANING
     Dosage: 1/4 CAP TWICE PER DAY DENTAL
     Route: 004
     Dates: start: 20080801, end: 20080930
  2. WHITENING PRE-BRUSH RINSE EQUATE [Suspect]
     Indication: DENTAL DISORDER PROPHYLAXIS
     Dosage: 1/4 CAP TWICE PER DAY DENTAL
     Route: 004
     Dates: start: 20080801, end: 20080930
  3. WHITENING PRE-BRUSH RINSE EQUATE [Suspect]

REACTIONS (2)
  - ORAL MUCOSAL EXFOLIATION [None]
  - SKIN EXFOLIATION [None]
